FAERS Safety Report 9009028 (Version 1)
Quarter: 2013Q1

REPORT INFORMATION
  Report Type: Spontaneous
  Country: FR (occurrence: FR)
  Receive Date: 20130111
  Receipt Date: 20130111
  Transmission Date: 20140127
  Serious: Yes (Hospitalization)
  Sender: FDA-Public Use
  Company Number: FR-UCBSA-074670

PATIENT
  Age: 22 Year
  Sex: Female

DRUGS (9)
  1. KEPPRA [Suspect]
     Route: 048
     Dates: start: 20120907, end: 201209
  2. KEPPRA [Suspect]
     Route: 048
     Dates: start: 201209, end: 20121018
  3. KEPPRA [Suspect]
     Route: 048
     Dates: start: 20121019
  4. GABAPENTIN [Concomitant]
     Indication: EPILEPSY
  5. GABAPENTIN [Concomitant]
     Indication: EPILEPSY
     Dates: start: 201202, end: 201205
  6. GABAPENTIN [Concomitant]
     Indication: EPILEPSY
     Dosage: DOSE: 1600 MG
     Dates: start: 201205, end: 20121019
  7. URBANYL [Concomitant]
     Dates: start: 20121019, end: 20121022
  8. URBANYL [Concomitant]
     Dates: start: 20121023, end: 2012
  9. URBANYL [Concomitant]
     Dosage: DAILY DOSE 5 MG
     Dates: start: 2012

REACTIONS (5)
  - Hallucination [Recovered/Resolved]
  - Mutism [Recovered/Resolved]
  - Visual impairment [Unknown]
  - Mental disorder [Unknown]
  - Exposure during pregnancy [Unknown]
